FAERS Safety Report 16727181 (Version 1)
Quarter: 2019Q3

REPORT INFORMATION
  Report Type: Spontaneous
  Country: US (occurrence: US)
  Receive Date: 20190822
  Receipt Date: 20190822
  Transmission Date: 20191005
  Serious: Yes (Hospitalization)
  Sender: FDA-Public Use
  Company Number: US-ROCHE-2378577

PATIENT
  Age: 57 Year
  Sex: Female

DRUGS (2)
  1. ACTEMRA [Suspect]
     Active Substance: TOCILIZUMAB
     Indication: HYPERTENSION
     Route: 058
     Dates: start: 20180525
  2. LORATADINE. [Concomitant]
     Active Substance: LORATADINE

REACTIONS (4)
  - Intentional product use issue [Unknown]
  - Off label use [Unknown]
  - Chest pain [Unknown]
  - Pain [Unknown]

NARRATIVE: CASE EVENT DATE: 20190717
